FAERS Safety Report 7633274-4 (Version None)
Quarter: 2011Q3

REPORT INFORMATION
  Report Type: 
  Country: None (occurrence: None)
  Receive Date: 20110718
  Receipt Date: 20110708
  Transmission Date: 20111222
  Serious: Yes (Death, Hospitalization, Other)
  Sender: FDA-Public Use
  Company Number: IPC201107-001930

PATIENT
  Age: 66 Year
  Sex: Female

DRUGS (5)
  1. HYDROXYCHLOROQUINE SULFATE [Suspect]
     Indication: SYSTEMIC LUPUS ERYTHEMATOSUS
     Dosage: 400 MG DAILY,
  2. FUROSEMIDE [Suspect]
     Indication: CARDIAC FAILURE
  3. PREDNISONE [Suspect]
     Indication: SYSTEMIC LUPUS ERYTHEMATOSUS
     Dosage: {5 MG/DAY
  4. AZATHIOPRINE [Suspect]
     Indication: SYSTEMIC LUPUS ERYTHEMATOSUS
  5. MILRINONE [Suspect]
     Indication: CARDIAC FAILURE

REACTIONS (7)
  - CORONARY ARTERY DISEASE [None]
  - DILATATION ATRIAL [None]
  - CARDIAC FAILURE [None]
  - ATRIOVENTRICULAR BLOCK COMPLETE [None]
  - MULTI-ORGAN FAILURE [None]
  - CARDIOTOXICITY [None]
  - RESTRICTIVE CARDIOMYOPATHY [None]
